FAERS Safety Report 6707400-5 (Version None)
Quarter: 2010Q2

REPORT INFORMATION
  Report Type: 
  Country: None (occurrence: None)
  Receive Date: 20100503
  Receipt Date: 20090224
  Transmission Date: 20101027
  Serious: No
  Sender: FDA-Public Use
  Company Number: US-ASTRAZENECA-2009UW01061

PATIENT
  Age: 987 Month
  Sex: Female
  Weight: 68 kg

DRUGS (14)
  1. NEXIUM [Suspect]
     Indication: GASTROOESOPHAGEAL REFLUX DISEASE
     Dosage: 40 MG, DAILY
     Route: 048
  2. NEXIUM [Suspect]
     Route: 048
     Dates: start: 20081001
  3. ANTIBIOTIC [Suspect]
  4. SYNTHROID [Concomitant]
  5. TUMS [Concomitant]
  6. DIOVAN [Concomitant]
  7. CRESTOR [Concomitant]
  8. ASPIRIN [Concomitant]
  9. VITAMIN E [Concomitant]
  10. MAGNESIUM [Concomitant]
  11. VITAMIN B6 [Concomitant]
  12. MULTI-VITAMINS [Concomitant]
  13. VITAMIN C [Concomitant]
  14. VITAMIN B-12 [Concomitant]

REACTIONS (4)
  - ABDOMINAL PAIN UPPER [None]
  - ANXIETY [None]
  - ILL-DEFINED DISORDER [None]
  - PALPITATIONS [None]
